FAERS Safety Report 6064166-2 (Version None)
Quarter: 2009Q1

REPORT INFORMATION
  Report Type: 
  Country: None (occurrence: None)
  Receive Date: 20090203
  Receipt Date: 20090203
  Transmission Date: 20090719
  Serious: Yes (Other)
  Sender: FDA-Public Use
  Company Number: None

PATIENT
  Age: 64 Year
  Sex: Male
  Weight: 97.5234 kg

DRUGS (2)
  1. LUNESTA [Suspect]
     Indication: INSOMNIA
     Dosage: TAKE 1 TABLET AT BEDTIME
     Dates: start: 20081210, end: 20090108
  2. LUNESTA [Suspect]
     Indication: PAIN
     Dosage: TAKE 1 TABLET AT BEDTIME
     Dates: start: 20081210, end: 20090108

REACTIONS (2)
  - DRUG INEFFECTIVE [None]
  - THERAPEUTIC RESPONSE UNEXPECTED WITH DRUG SUBSTITUTION [None]
